FAERS Safety Report 5734664-7 (Version None)
Quarter: 2008Q2

REPORT INFORMATION
  Report Type: 
  Country: None (occurrence: None)
  Receive Date: 20080512
  Receipt Date: 20080502
  Transmission Date: 20081010
  Serious: Yes (Death)
  Sender: FDA-Public Use
  Company Number: US-ROCHE-560048

PATIENT
  Sex: Male
  Weight: 72.6 kg

DRUGS (1)
  1. XELODA [Suspect]
     Dosage: PATIENT COMPLETED ONE CYCLE OF CAPECITABINE.
     Route: 065

REACTIONS (1)
  - DISEASE PROGRESSION [None]
